FAERS Safety Report 7678361-X (Version None)
Quarter: 2011Q3

REPORT INFORMATION
  Report Type: 
  Country: None (occurrence: None)
  Receive Date: 20110811
  Receipt Date: 20110809
  Transmission Date: 20111222
  Serious: No
  Sender: FDA-Public Use
  Company Number: US-PFIZER INC-2011183262

PATIENT
  Sex: Female
  Weight: 61.224 kg

DRUGS (4)
  1. HYDROCHLOROTHIAZIDE [Concomitant]
     Indication: HYPOTHYROIDISM
     Dosage: UNK, 1X/DAY
  2. BENADRYL [Concomitant]
     Dosage: UNK, 1X/DAY
  3. VYTORIN [Concomitant]
     Dosage: UNK
  4. ADVIL LIQUI-GELS [Suspect]
     Indication: BACK PAIN
     Dosage: 200 MG, UNK
     Route: 048
     Dates: start: 20110801, end: 20110808

REACTIONS (2)
  - ABDOMINAL DISTENSION [None]
  - GASTROINTESTINAL PAIN [None]
